FAERS Safety Report 25553076 (Version 1)
Quarter: 2025Q3

REPORT INFORMATION
  Report Type: Spontaneous
  Country: US (occurrence: US)
  Receive Date: 20250715
  Receipt Date: 20250715
  Transmission Date: 20251021
  Serious: Yes (Hospitalization)
  Sender: AMGEN
  Company Number: US-AMGEN-USASP2025133450

PATIENT
  Age: 32 Year
  Sex: Female

DRUGS (2)
  1. PREDNISONE [Suspect]
     Active Substance: PREDNISONE
     Indication: Vasculitis
     Dosage: 60 MILLIGRAM, QD (1 MG/KG)
     Route: 065
  2. PREDNISONE [Suspect]
     Active Substance: PREDNISONE
     Dosage: 20 MILLIGRAM, QD, OVER THE FOLLOWING 2 MONTHS
     Route: 065

REACTIONS (2)
  - Takayasu^s arteritis [Unknown]
  - Subclavian steal syndrome [Unknown]
